FAERS Safety Report 5205813-4 (Version None)
Quarter: 2007Q1

REPORT INFORMATION
  Report Type: 
  Country: None (occurrence: None)
  Receive Date: 20070111
  Receipt Date: 20070102
  Transmission Date: 20070707
  Serious: Yes (Hospitalization)
  Sender: FDA-Public Use
  Company Number: PL-BAXTER-2006BH015253

PATIENT
  Age: 2 Year
  Sex: Female
  Weight: 12 kg

DRUGS (2)
  1. GAMMAGARD S/D [Suspect]
     Indication: MYOCARDITIS
     Route: 042
     Dates: start: 20061220, end: 20061220
  2. GAMMAGARD S/D [Suspect]
     Indication: INTENTIONAL DRUG MISUSE
     Route: 042
     Dates: start: 20061220, end: 20061220

REACTIONS (4)
  - ABDOMINAL PAIN [None]
  - ANXIETY [None]
  - PYREXIA [None]
  - VOMITING [None]
